FAERS Safety Report 8810145 (Version 2)
Quarter: 2013Q2

REPORT INFORMATION
  Report Type: Report from Study
  Country: JP (occurrence: JP)
  Receive Date: 20120926
  Receipt Date: 20130401
  Transmission Date: 20140414
  Serious: Yes (Hospitalization, Other)
  Sender: FDA-Public Use
  Company Number: JP-BRISTOL-MYERS SQUIBB COMPANY-14777403

PATIENT
  Age: 44 Year
  Sex: Female

DRUGS (12)
  1. SPRYCEL [Suspect]
     Indication: CHRONIC MYELOID LEUKAEMIA
     Dosage: 7AUG-RED-50MG;INTER-AUG;RES 4SEP,20MG,INCRSD(50MG)18SEP09;RES-6NOV+12FEB10?RES-24AP12?INC-23MY12
     Route: 048
     Dates: start: 20090803
  2. SULBACTAM + AMPICILLIN [Suspect]
     Indication: PNEUMONIA PSEUDOMONAS AERUGINOSA
     Dosage: INJ
     Route: 042
     Dates: start: 20110825, end: 20110825
  3. ZOSYN [Suspect]
     Indication: PNEUMONIA PSEUDOMONAS AERUGINOSA
     Route: 042
     Dates: start: 20110826, end: 20110826
  4. SPIRONOLACTONE [Concomitant]
     Route: 048
     Dates: end: 20091029
  5. FUROSEMIDE [Concomitant]
     Dosage: DOSE REDUCED 40MG,5-7 AUG09?DOSE INCREASED 80MG,8AUG09-13AUG?80 MG,16OCT-29OCT?40 MG,30OCT09-ONG
     Route: 048
     Dates: start: 20090808
  6. SALOBEL [Concomitant]
     Indication: HYPERURICAEMIA
     Dosage: TAB?50MG
     Route: 048
     Dates: start: 20120315
  7. LEUCINE [Concomitant]
     Route: 048
  8. HUMALOG [Concomitant]
     Indication: DIABETES MELLITUS
     Dosage: 1 DOSAGE FORM = 14 UNITS. FORM: INJ.
     Route: 058
  9. LANTUS [Concomitant]
     Indication: DIABETES MELLITUS
     Dosage: 1 DOSAGE FORM = 16 UNITS. FORM: INJ.
     Route: 058
  10. ETODOLAC [Concomitant]
  11. LIVACT [Concomitant]
     Indication: HEPATIC CIRRHOSIS
     Route: 048
  12. AMINOLEBAN [Concomitant]
     Dosage: POWDER?UNK-15MAR12,1DF?16MAR12-ONG,3DF
     Route: 048

REACTIONS (14)
  - Coma hepatic [Recovered/Resolved]
  - Renal disorder [Recovering/Resolving]
  - Pneumonia bacterial [Recovered/Resolved]
  - Pleural effusion [Recovering/Resolving]
  - Ascites [Recovering/Resolving]
  - Alanine aminotransferase increased [Recovered/Resolved]
  - Aspartate aminotransferase increased [Recovered/Resolved]
  - Jaundice [Recovered/Resolved]
  - Anaemia [Recovering/Resolving]
  - Gamma-glutamyltransferase increased [Recovered/Resolved]
  - Diarrhoea [Recovered/Resolved]
  - Nausea [Recovered/Resolved]
  - Pneumonia pseudomonas aeruginosa [Recovered/Resolved]
  - Gastrointestinal haemorrhage [Recovered/Resolved]
